FAERS Safety Report 19448168 (Version 1)
Quarter: 2021Q2

REPORT INFORMATION
  Report Type: Spontaneous
  Country: US (occurrence: US)
  Receive Date: 20210622
  Receipt Date: 20210622
  Transmission Date: 20210717
  Serious: Yes (Hospitalization, Congenital Anomaly)
  Sender: FDA-Public Use
  Company Number: US-PFIZER INC-2021730351

PATIENT
  Sex: Female

DRUGS (3)
  1. CODEINE [Suspect]
     Active Substance: CODEINE
     Dosage: UNK
     Route: 064
  2. NICOTINE. [Suspect]
     Active Substance: NICOTINE
     Dosage: UNK
     Route: 064
  3. CAFFEINE. [Suspect]
     Active Substance: CAFFEINE
     Dosage: UNK
     Route: 064

REACTIONS (4)
  - Maternal exposure during pregnancy [Unknown]
  - Premature baby [Unknown]
  - Trisomy 21 [Unknown]
  - Patent ductus arteriosus [Unknown]
